FAERS Safety Report 14655670 (Version 2)
Quarter: 2018Q2

REPORT INFORMATION
  Report Type: Report from Study
  Country: IN (occurrence: IN)
  Receive Date: 20180319
  Receipt Date: 20180406
  Transmission Date: 20180711
  Serious: Yes (Hospitalization)
  Sender: FDA-Public Use
  Company Number: IN-TEVA-2018-IN-871883

PATIENT
  Age: 25 Year
  Sex: Male
  Weight: 72.4 kg

DRUGS (1)
  1. RISEDRONATE SODIUM DELAYED RELEASE TABLETS [Suspect]
     Active Substance: RISEDRONATE SODIUM
     Dosage: 35 MILLIGRAM DAILY;
     Route: 048
     Dates: start: 20180309, end: 20180309

REACTIONS (3)
  - Pyrexia [Recovered/Resolved]
  - Abdominal pain upper [Recovered/Resolved]
  - Diarrhoea [Recovered/Resolved]

NARRATIVE: CASE EVENT DATE: 20180311
